FAERS Safety Report 25835149 (Version 1)
Quarter: 2025Q3

REPORT INFORMATION
  Report Type: Spontaneous
  Country: GB (occurrence: GB)
  Receive Date: 20250923
  Receipt Date: 20250923
  Transmission Date: 20251020
  Serious: Yes (Other)
  Sender: RANBAXY
  Company Number: GB-SUN PHARMACEUTICAL INDUSTRIES LTD-2025RR-526660

PATIENT
  Age: 51 Year
  Sex: Female

DRUGS (3)
  1. SERTRALINE [Suspect]
     Active Substance: SERTRALINE HYDROCHLORIDE
     Indication: Product used for unknown indication
     Dosage: 100 MILLIGRAM, DAILY, 100MG ONCE A DAY AT NIGHTTIME.
     Route: 065
  2. ESTRADIOL, PROGESTERONE [Concomitant]
     Indication: Hormone replacement therapy
     Route: 065
  3. ESTRADIOL, PROGESTERONE [Concomitant]
     Indication: Hormone replacement therapy
     Route: 065

REACTIONS (2)
  - Bruxism [Not Recovered/Not Resolved]
  - Trichotillomania [Not Recovered/Not Resolved]
